FAERS Safety Report 21694188 (Version 1)
Quarter: 2022Q4

REPORT INFORMATION
  Report Type: Other
  Country: US (occurrence: US)
  Receive Date: 20221207
  Receipt Date: 20221207
  Transmission Date: 20230112
  Serious: Yes (Other)
  Sender: FDA-Public Use
  Company Number: US-TRAVERE-2022TVT00458

PATIENT
  Age: 9 Year
  Sex: Female

DRUGS (5)
  1. CHOLIC ACID [Suspect]
     Active Substance: CHOLIC ACID
     Indication: Inborn error in primary bile acid synthesis
     Dosage: 100 MILLIGRAMS TWICE DAILY
     Route: 048
     Dates: start: 20160716
  2. VITAMIN B6 [Concomitant]
     Active Substance: PYRIDOXINE HYDROCHLORIDE
  3. PYRIDOXINE [Concomitant]
     Active Substance: PYRIDOXINE
  4. LEVETIRACETAM [Concomitant]
     Active Substance: LEVETIRACETAM
  5. MIRALAX [Concomitant]
     Active Substance: POLYETHYLENE GLYCOL 3350

REACTIONS (1)
  - COVID-19 [None]
